FAERS Safety Report 5321145-8 (Version None)
Quarter: 2007Q2

REPORT INFORMATION
  Report Type: 
  Country: None (occurrence: None)
  Receive Date: 20070504
  Receipt Date: 20070425
  Transmission Date: 20071010
  Serious: Yes (Other)
  Sender: FDA-Public Use
  Company Number: IMP_02839_2007

PATIENT
  Sex: Female

DRUGS (1)
  1. BUPROPION HCL [Suspect]
     Indication: DEPRESSION
     Dosage: (300 MG QD ORAL)
     Route: 048
     Dates: start: 20070201, end: 20070421

REACTIONS (5)
  - DRUG INEFFECTIVE [None]
  - HEADACHE [None]
  - PHARMACEUTICAL PRODUCT COMPLAINT [None]
  - SUICIDAL IDEATION [None]
  - VISUAL DISTURBANCE [None]
